FAERS Safety Report 7418878 (Version 6)
Quarter: 2013Q3

REPORT INFORMATION
  Report Type: Report from Study
  Country: DE (occurrence: DE)
  Receive Date: 20100614
  Receipt Date: 20130716
  Transmission Date: 20140515
  Serious: Yes (Hospitalization, Other)
  Sender: FDA-Public Use
  Company Number: PHHY2010DE35676

PATIENT
  Age: 47 Year
  Sex: Male
  Weight: 82 kg

DRUGS (5)
  1. AMN107 [Suspect]
     Indication: CHRONIC MYELOID LEUKAEMIA
     Dosage: 800 MG, DAILY
     Route: 048
     Dates: start: 20080721, end: 20090210
  2. LITALIR [Suspect]
     Indication: CHRONIC MYELOID LEUKAEMIA
     Dosage: 500 MG, DAILY
     Route: 048
     Dates: end: 20090531
  3. IBUPROFEN [Concomitant]
     Dates: start: 20081106
  4. MORPHINE [Concomitant]
     Dates: start: 20090714
  5. PARACETAMOL [Concomitant]
     Dates: start: 20090714

REACTIONS (25)
  - Cauda equina syndrome [Not Recovered/Not Resolved]
  - Faecal incontinence [Not Recovered/Not Resolved]
  - Bladder disorder [Not Recovered/Not Resolved]
  - Quadriparesis [Recovered/Resolved]
  - Muscular weakness [Recovered/Resolved]
  - Chest pain [Recovered/Resolved]
  - Pain in extremity [Recovered/Resolved]
  - Musculoskeletal pain [Recovered/Resolved]
  - Asthenia [Recovered/Resolved]
  - Hypoaesthesia [Recovered/Resolved]
  - Neuralgia [Recovered/Resolved]
  - Duodenal ulcer [Recovered/Resolved]
  - Incontinence [Not Recovered/Not Resolved]
  - Malignant neoplasm progression [Unknown]
  - Headache [Recovered/Resolved]
  - Hepatic enzyme abnormal [Recovered/Resolved]
  - Back pain [Not Recovered/Not Resolved]
  - Arthralgia [Recovered/Resolved]
  - Feeling cold [Recovered/Resolved]
  - Tooth disorder [Recovered/Resolved]
  - Anaemia [Recovered/Resolved]
  - Abdominal pain upper [Recovered/Resolved]
  - Neck pain [Recovered/Resolved]
  - Nausea [Unknown]
  - Dizziness [Unknown]
